FAERS Safety Report 7899576-1 (Version None)
Quarter: 2011Q4

REPORT INFORMATION
  Report Type: 
  Country: None (occurrence: None)
  Receive Date: 20111107
  Receipt Date: 20110915
  Transmission Date: 20120403
  Serious: No
  Sender: FDA-Public Use
  Company Number: US-AMGEN-USASP2011047613

PATIENT
  Age: 66 Year
  Sex: Female

DRUGS (2)
  1. ENBREL [Suspect]
     Indication: PSORIATIC ARTHROPATHY
  2. ENBREL [Suspect]
     Indication: RHEUMATOID ARTHRITIS
     Dosage: 50 MG, QWK
     Dates: start: 20110830

REACTIONS (6)
  - BLISTER [None]
  - INJECTION SITE REACTION [None]
  - THERAPEUTIC RESPONSE DECREASED [None]
  - DRY SKIN [None]
  - RASH ERYTHEMATOUS [None]
  - RASH PUSTULAR [None]
